FAERS Safety Report 13712783 (Version 1)
Quarter: 2017Q3

REPORT INFORMATION
  Report Type: Spontaneous
  Country: DE (occurrence: DE)
  Receive Date: 20170703
  Receipt Date: 20170703
  Transmission Date: 20171127
  Serious: Yes (Death)
  Sender: FDA-Public Use
  Company Number: DE-IPSEN BIOSCIENCE, INC.-MER-2017-000160

PATIENT
  Age: 76 Year
  Sex: Female

DRUGS (1)
  1. ONIVYDE [Suspect]
     Active Substance: IRINOTECAN HYDROCHLORIDE
     Indication: PANCREATIC CARCINOMA
     Dosage: 144 MG, 3 CYCLES
     Route: 065

REACTIONS (2)
  - Death [Fatal]
  - Pulmonary embolism [None]
